FAERS Safety Report 4448233-2 (Version None)
Quarter: 2004Q3

REPORT INFORMATION
  Report Type: 
  Country: None (occurrence: None)
  Receive Date: 20040813
  Receipt Date: 20040615
  Transmission Date: 20050211
  Serious: Yes (Other)
  Sender: FDA-Public Use
  Company Number: S04-USA-03516-01

PATIENT
  Age: 82 Year
  Sex: Female
  Weight: 70.3075 kg

DRUGS (14)
  1. NAMENDA [Suspect]
     Indication: DEMENTIA
     Dosage: 5 MG QD PO
     Route: 048
     Dates: start: 20040323, end: 20040329
  2. NAMENDA [Suspect]
     Indication: DEMENTIA
     Dosage: 10 MG QD PO
     Route: 048
     Dates: start: 20040330, end: 20040405
  3. NAMENDA [Suspect]
     Indication: DEMENTIA
     Dosage: 5 MG QAM PO
     Route: 048
     Dates: start: 20040406, end: 20040412
  4. NAMENDA [Suspect]
     Indication: DEMENTIA
     Dosage: 10 MG QHS PO
     Route: 048
     Dates: start: 20040406, end: 20040412
  5. NAMENDA [Suspect]
     Indication: DEMENTIA
     Dosage: 10 MG BID PO
     Route: 048
     Dates: start: 20040413, end: 20040514
  6. VASOTEC [Concomitant]
  7. SLOW-K [Concomitant]
  8. RANITIDINE [Concomitant]
  9. BUMEX [Concomitant]
  10. CARDIZEM SR [Concomitant]
  11. EXELON [Concomitant]
  12. TYLENOL W/ CODEINE NO. 3 [Concomitant]
  13. BENEFIBER [Concomitant]
  14. RESTORIL [Concomitant]

REACTIONS (2)
  - CARDIAC FAILURE CONGESTIVE [None]
  - CONSTIPATION [None]
